FAERS Safety Report 6785156-8 (Version None)
Quarter: 2010Q2

REPORT INFORMATION
  Report Type: 
  Country: None (occurrence: None)
  Receive Date: 20100618
  Receipt Date: 20100609
  Transmission Date: 20101027
  Serious: Yes (Other)
  Sender: FDA-Public Use
  Company Number: DE-1181232

PATIENT
  Sex: Female

DRUGS (4)
  1. IOPIDINE [Suspect]
     Indication: GLAUCOMA
     Dosage: TID; OPHTHALMIC
     Route: 047
     Dates: end: 20100401
  2. NOCOTHYRAL (NOVOTHYRAL) [Concomitant]
  3. CETIRIZIN (CETIRIZINE HYDROCHLORIDE) [Concomitant]
  4. JODID (POTASSIUM IODIDE) [Concomitant]

REACTIONS (5)
  - DRUG INEFFECTIVE [None]
  - EYE IRRITATION [None]
  - EYE PRURITUS [None]
  - MIGRAINE [None]
  - VISUAL ACUITY REDUCED [None]
